FAERS Safety Report 25563104 (Version 1)
Quarter: 2025Q3

REPORT INFORMATION
  Report Type: Spontaneous
  Country: CH (occurrence: CH)
  Receive Date: 20250716
  Receipt Date: 20250716
  Transmission Date: 20251021
  Serious: Yes (Hospitalization, Other)
  Sender: BAXTER
  Company Number: None

PATIENT
  Age: 19 Year
  Sex: Male
  Weight: 118 kg

DRUGS (12)
  1. MESNA [Suspect]
     Active Substance: MESNA
     Indication: Chemotherapy urothelial toxicity attenuation
     Route: 042
     Dates: start: 20250514, end: 20250515
  2. MESNA [Suspect]
     Active Substance: MESNA
     Route: 042
     Dates: start: 20250519, end: 20250521
  3. IFOSFAMIDE [Suspect]
     Active Substance: IFOSFAMIDE
     Indication: Ewing^s sarcoma recurrent
     Route: 042
     Dates: start: 20250514, end: 20250515
  4. IFOSFAMIDE [Suspect]
     Active Substance: IFOSFAMIDE
     Route: 042
     Dates: start: 20250519, end: 20250521
  5. DAFALGAN [Concomitant]
     Active Substance: ACETAMINOPHEN
     Indication: Pain
     Route: 048
  6. Palonosetron labatec [Concomitant]
     Indication: Chemotherapy
     Route: 042
     Dates: start: 20250514, end: 20250514
  7. Palonosetron labatec [Concomitant]
     Route: 042
     Dates: start: 20250519, end: 20250519
  8. Novalgin [Concomitant]
     Indication: Pain
     Route: 048
  9. DEXAMETHASONE [Concomitant]
     Active Substance: DEXAMETHASONE
     Indication: Chemotherapy
     Route: 042
     Dates: start: 20250514, end: 20250514
  10. DEXAMETHASONE [Concomitant]
     Active Substance: DEXAMETHASONE
     Route: 048
     Dates: start: 20250515, end: 20250516
  11. DEXAMETHASONE [Concomitant]
     Active Substance: DEXAMETHASONE
     Route: 042
     Dates: start: 20250519, end: 20250519
  12. DEXAMETHASONE [Concomitant]
     Active Substance: DEXAMETHASONE
     Route: 048
     Dates: start: 20250520, end: 20250521

REACTIONS (1)
  - Cystitis haemorrhagic [Recovered/Resolved]

NARRATIVE: CASE EVENT DATE: 20250516
